FAERS Safety Report 6160775-0 (Version None)
Quarter: 2009Q2

REPORT INFORMATION
  Report Type: 
  Country: None (occurrence: None)
  Receive Date: 20090420
  Receipt Date: 20090414
  Transmission Date: 20091009
  Serious: Yes (Other)
  Sender: FDA-Public Use
  Company Number: PHHY2009BR14445

PATIENT
  Age: 53 Year
  Sex: Male
  Weight: 78 kg

DRUGS (5)
  1. RASILEZ [Suspect]
     Indication: HYPERTENSION
     Dosage: 150 MG, 2 TABLETS DAILY
     Route: 048
  2. RASILEZ [Suspect]
     Dosage: 300 MG, 1 TABLET DAILY
  3. ATENOLOL [Concomitant]
     Indication: TACHYCARDIA
     Dosage: 100 MG, 1 TABLET DAILY
     Route: 048
  4. INDAPAMIDE [Concomitant]
     Indication: URINARY RETENTION
     Dosage: 1.5 MG, 1 TABLET DAILY
     Route: 048
  5. AMITRIPTLINE HYDROCHLORIDE TAB [Concomitant]
     Indication: SLEEP DISORDER
     Dosage: 25 MG 1 TABLET BEFORE SLEEP
     Route: 048

REACTIONS (7)
  - BREATH ODOUR [None]
  - CHEILITIS [None]
  - DYSURIA [None]
  - GINGIVAL BLEEDING [None]
  - HEADACHE [None]
  - MOUTH HAEMORRHAGE [None]
  - PROSTATOMEGALY [None]
